FAERS Safety Report 9779599 (Version 2)
Quarter: 2014Q1

REPORT INFORMATION
  Report Type: Spontaneous
  Country: US (occurrence: US)
  Receive Date: 20131223
  Receipt Date: 20140205
  Transmission Date: 20141002
  Serious: Yes (Disabling, Other)
  Sender: FDA-Public Use
  Company Number: US-PFIZER INC-2013365430

PATIENT
  Age: 56 Year
  Sex: Female
  Weight: 56.69 kg

DRUGS (6)
  1. EFFEXOR XR [Suspect]
     Indication: DEPRESSION
     Dosage: 300 MG (BY TAKING TWO CAPSULES OF 150MG AT ONCE), 1X/DAY (IN MORNING)
     Route: 048
  2. VYVANSE [Concomitant]
     Dosage: UNK
  3. LISINOPRIL [Concomitant]
     Dosage: UNK
  4. LORAZEPAM [Concomitant]
     Dosage: UNK
  5. XALATAN [Concomitant]
     Dosage: UNK
  6. CLONAZEPAM [Concomitant]
     Dosage: UNK

REACTIONS (3)
  - Post-traumatic stress disorder [Not Recovered/Not Resolved]
  - Arthritis [Unknown]
  - Inappropriate schedule of drug administration [Unknown]
